FAERS Safety Report 5707722-0 (Version None)
Quarter: 2008Q2

REPORT INFORMATION
  Report Type: 
  Country: None (occurrence: None)
  Receive Date: 20080417
  Receipt Date: 20080414
  Transmission Date: 20081010
  Serious: Yes (Other)
  Sender: FDA-Public Use
  Company Number: US-RANBAXY-2008US-14217

PATIENT

DRUGS (2)
  1. ISOTRETINOIN [Suspect]
     Indication: ACNE
     Dosage: 40 MG, QD
     Route: 048
  2. VALIUM [Suspect]
     Indication: RESTLESS LEGS SYNDROME

REACTIONS (7)
  - ANGER [None]
  - DRY MOUTH [None]
  - DRY SKIN [None]
  - ECZEMA [None]
  - EPISTAXIS [None]
  - SLEEP DISORDER [None]
  - TINNITUS [None]
